FAERS Safety Report 16643606 (Version 1)
Quarter: 2019Q3

REPORT INFORMATION
  Report Type: Spontaneous
  Country: US (occurrence: US)
  Receive Date: 20190729
  Receipt Date: 20190729
  Transmission Date: 20191004
  Serious: No
  Sender: FDA-Public Use
  Company Number: US-PFIZER INC-2019317655

PATIENT
  Age: 57 Year
  Sex: Female

DRUGS (1)
  1. IBRANCE [Suspect]
     Active Substance: PALBOCICLIB
     Dosage: UNK UNK, CYCLIC

REACTIONS (4)
  - Fatigue [Unknown]
  - White blood cell count decreased [Unknown]
  - Diarrhoea [Unknown]
  - Abdominal distension [Unknown]
